FAERS Safety Report 4385487-5 (Version None)
Quarter: 2004Q2

REPORT INFORMATION
  Report Type: 
  Country: None (occurrence: None)
  Receive Date: 20040622
  Receipt Date: 20040607
  Transmission Date: 20050107
  Serious: Yes (Life-Threatening)
  Sender: FDA-Public Use
  Company Number: 2004-BP-04203NB

PATIENT
  Age: 78 Year
  Sex: Male

DRUGS (4)
  1. MICARDIS [Suspect]
     Indication: HYPERTENSION
     Dosage: 40 MG (40 MG)
     Route: 048
     Dates: start: 20040310, end: 20040318
  2. SIGMART (NICORANDIL) (TA) [Concomitant]
  3. ISOSORBIDE MONONITRATE [Concomitant]
  4. ASPIRIN [Concomitant]

REACTIONS (1)
  - HYPERKALAEMIA [None]
